FAERS Safety Report 4709808-6 (Version None)
Quarter: 2005Q3

REPORT INFORMATION
  Report Type: 
  Country: None (occurrence: None)
  Receive Date: 20050708
  Receipt Date: 20050531
  Transmission Date: 20060218
  Serious: Yes (Death)
  Sender: FDA-Public Use
  Company Number: PHHO2005JP08670

PATIENT
  Age: 60 Year
  Sex: Male
  Weight: 61 kg

DRUGS (10)
  1. LOCHOL [Suspect]
     Indication: HYPERCHOLESTEROLAEMIA
     Dosage: 20 MG, QD
     Route: 048
     Dates: start: 20001025
  2. SYMMETREL [Suspect]
  3. ABILIT [Concomitant]
  4. RISPERDAL [Concomitant]
  5. RENIVACE [Suspect]
  6. PANALDINE [Suspect]
  7. ADALAT [Suspect]
  8. LULLAN [Suspect]
  9. LORAZEPAM [Suspect]
     Dates: start: 20010919, end: 20050413
  10. ARTANE [Suspect]

REACTIONS (1)
  - HYPERTENSIVE HEART DISEASE [None]
